FAERS Safety Report 14648149 (Version 1)
Quarter: 2018Q1

REPORT INFORMATION
  Report Type: Spontaneous
  Country: US (occurrence: US)
  Receive Date: 20180315
  Receipt Date: 20180315
  Transmission Date: 20180509
  Serious: Yes (Other)
  Sender: FDA-Public Use
  Company Number: None

PATIENT
  Age: 68 Year
  Sex: Female

DRUGS (10)
  1. SUTENT [Suspect]
     Active Substance: SUNITINIB MALATE
     Indication: UTERINE CANCER
     Route: 058
     Dates: start: 20151120
  2. BICALUTAMIDE. [Concomitant]
     Active Substance: BICALUTAMIDE
  3. LANTUS INJECTION [Concomitant]
  4. SOLOSTAR [Concomitant]
     Active Substance: DEVICE
  5. KLOR-CON [Concomitant]
     Active Substance: POTASSIUM CHLORIDE
  6. HYDROCO/APAP [Concomitant]
     Active Substance: ACETAMINOPHEN\HYDROCODONE
  7. ROSUVASTATIN. [Concomitant]
     Active Substance: ROSUVASTATIN
  8. AMLODIPINE [Concomitant]
     Active Substance: AMLODIPINE BESYLATE
  9. SYMBICORT [Concomitant]
     Active Substance: BUDESONIDE\FORMOTEROL FUMARATE DIHYDRATE
  10. POT CHLORIDE [Concomitant]
     Active Substance: POTASSIUM CHLORIDE

REACTIONS (9)
  - Renal cell carcinoma [None]
  - Furuncle [None]
  - Skin exfoliation [None]
  - Acrochordon [None]
  - Bronchitis [None]
  - Vomiting [None]
  - Groin infection [None]
  - Skin discolouration [None]
  - Tobacco user [None]
